FAERS Safety Report 15534252 (Version 1)
Quarter: 2018Q4

REPORT INFORMATION
  Report Type: Spontaneous
  Country: US (occurrence: US)
  Receive Date: 20181015
  Receipt Date: 20181015
  Transmission Date: 20190205
  Serious: Yes (Hospitalization)
  Sender: FDA-Public Use
  Company Number: None

PATIENT
  Age: 56 Year
  Weight: 69 kg

DRUGS (1)
  1. NEXAVAR [Suspect]
     Active Substance: SORAFENIB
     Dates: end: 20180914

REACTIONS (12)
  - Hypercapnia [None]
  - Acute kidney injury [None]
  - Acute respiratory distress syndrome [None]
  - Anoxia [None]
  - Abdominal pain [None]
  - Leukocytosis [None]
  - Encephalopathy [None]
  - Cholecystitis [None]
  - Cholelithiasis [None]
  - Tachycardia [None]
  - Hypoxia [None]
  - Septic shock [None]

NARRATIVE: CASE EVENT DATE: 20180914
